FAERS Safety Report 20416000 (Version 1)
Quarter: 2022Q1

REPORT INFORMATION
  Report Type: Spontaneous
  Country: US (occurrence: None)
  Receive Date: 20220201
  Receipt Date: 20220201
  Transmission Date: 20220423
  Serious: Yes (Hospitalization)
  Sender: FDA-Public Use
  Company Number: None

PATIENT
  Sex: Female

DRUGS (5)
  1. CAPECITABINE [Suspect]
     Active Substance: CAPECITABINE
  2. CAPECITABINE [Suspect]
     Active Substance: CAPECITABINE
  3. ENOXAPARIN INJ [Concomitant]
  4. LOPERAMIDE CAP [Concomitant]
  5. TAMSULOSIN CAP [Concomitant]

REACTIONS (1)
  - Jaundice [None]
